FAERS Safety Report 7327292-3 (Version None)
Quarter: 2011Q1

REPORT INFORMATION
  Report Type: 
  Country: None (occurrence: None)
  Receive Date: 20110302
  Receipt Date: 20110224
  Transmission Date: 20110831
  Serious: Yes (Life-Threatening, Hospitalization, Other)
  Sender: FDA-Public Use
  Company Number: US-GENENTECH-313483

PATIENT
  Sex: Female
  Weight: 107.48 kg

DRUGS (2)
  1. XOLAIR [Suspect]
     Indication: ASTHMA
     Dosage: 225 MG, Q2W
     Route: 058
     Dates: start: 20110204, end: 20110204
  2. CONCOMITANT DRUG [Concomitant]
     Indication: PRODUCT USED FOR UNKNOWN INDICATION

REACTIONS (8)
  - RESPIRATORY ARREST [None]
  - DYSPNOEA [None]
  - URTICARIA [None]
  - SWELLING FACE [None]
  - PARAESTHESIA ORAL [None]
  - PRURITUS [None]
  - ANAPHYLACTIC REACTION [None]
  - LIP SWELLING [None]
